FAERS Safety Report 4829330-6 (Version None)
Quarter: 2005Q4

REPORT INFORMATION
  Report Type: 
  Country: None (occurrence: None)
  Receive Date: 20051115
  Receipt Date: 20051115
  Transmission Date: 20060501
  Serious: Yes (Other)
  Sender: FDA-Public Use
  Company Number: None

PATIENT
  Age: 44 Year
  Sex: Female
  Weight: 58.0604 kg

DRUGS (2)
  1. XYREM [Suspect]
     Indication: INSOMNIA
     Dosage: 6 ML QHS  PO;  3 ML  2 1/2 HOURS LATER  PO
     Route: 048
     Dates: start: 20051103, end: 20051108
  2. XYREM [Suspect]
     Indication: SOMNOLENCE
     Dosage: 6 ML QHS  PO;  3 ML  2 1/2 HOURS LATER  PO
     Route: 048
     Dates: start: 20051103, end: 20051108

REACTIONS (2)
  - DRUG TOXICITY [None]
  - PSYCHOTIC DISORDER [None]
